FAERS Safety Report 18223111 (Version 1)
Quarter: 2020Q3

REPORT INFORMATION
  Report Type: Spontaneous
  Country: US (occurrence: US)
  Receive Date: 20200902
  Receipt Date: 20200902
  Transmission Date: 20201103
  Serious: Yes (Death)
  Sender: FDA-Public Use
  Company Number: US-TEVA-2019-US-1032222

PATIENT
  Age: 21 Year
  Sex: Female

DRUGS (1)
  1. SYNRIBO [Suspect]
     Active Substance: OMACETAXINE MEPESUCCINATE
     Dosage: 7 MILLIGRAM/MILLILITERS DAILY; DOSAGE: 1.85 MILLIGRAM / 0.53 MILLILITER X 5 DAYS
     Dates: start: 20190316

REACTIONS (1)
  - Death [Fatal]

NARRATIVE: CASE EVENT DATE: 20190320
